FAERS Safety Report 14530823 (Version 8)
Quarter: 2022Q4

REPORT INFORMATION
  Report Type: Spontaneous
  Country: US (occurrence: US)
  Receive Date: 20180214
  Receipt Date: 20221024
  Transmission Date: 20230113
  Serious: Yes (Other)
  Sender: FDA-Public Use
  Company Number: US-PFIZER INC-2018061673

PATIENT
  Age: 27 Year
  Sex: Male
  Weight: 90.72 kg

DRUGS (4)
  1. RAPAMUNE [Suspect]
     Active Substance: SIROLIMUS
     Indication: Heart transplant
     Dosage: 1 MG, 1X/DAY (SKIPPING TUESDAY AND THURSDAY)
     Route: 048
     Dates: end: 201801
  2. RAPAMUNE [Suspect]
     Active Substance: SIROLIMUS
     Dosage: 1MG, (EVERY M W F SAT + SUN)
     Route: 048
  3. RAPAMUNE [Suspect]
     Active Substance: SIROLIMUS
     Dosage: 1 MG (1MG, TAKE M/ W/ F/ SAT)
     Route: 048
  4. RAPAMUNE [Suspect]
     Active Substance: SIROLIMUS
     Dosage: 1 MG (1MG, TAKE M/ W/ F/ SAT + SUN)
     Route: 048

REACTIONS (2)
  - Ligament rupture [Unknown]
  - Off label use [Unknown]

NARRATIVE: CASE EVENT DATE: 20180101
